FAERS Safety Report 7980534-3 (Version None)
Quarter: 2011Q4

REPORT INFORMATION
  Report Type: 
  Country: None (occurrence: None)
  Receive Date: 20111214
  Receipt Date: 20111206
  Transmission Date: 20120403
  Serious: Yes (Hospitalization)
  Sender: FDA-Public Use
  Company Number: GR-GLAXOSMITHKLINE-B0768887A

PATIENT
  Sex: Male

DRUGS (5)
  1. DEXAMETHASONE [Concomitant]
     Indication: METASTASES TO CENTRAL NERVOUS SYSTEM
     Dosage: 10ML TWICE PER DAY
     Route: 042
     Dates: start: 20111018
  2. SIMVASTATIN [Concomitant]
     Indication: AORTIC OCCLUSION
     Dosage: 20MG PER DAY
     Route: 048
     Dates: start: 19950615
  3. INNOHEP [Concomitant]
     Indication: AORTIC OCCLUSION
     Dosage: 3.5MG PER DAY
     Route: 042
     Dates: start: 20110815
  4. LOSARTAN POTASSIUM [Concomitant]
     Indication: AORTIC OCCLUSION
     Dosage: 25MG PER DAY
     Route: 048
     Dates: start: 19950615
  5. TYKERB [Suspect]
     Indication: LUNG CANCER METASTATIC
     Dosage: 1250MG PER DAY
     Route: 048
     Dates: start: 20111117

REACTIONS (2)
  - DIARRHOEA [None]
  - MUCOSAL INFLAMMATION [None]
